FAERS Safety Report 24846299 (Version 5)
Quarter: 2025Q2

REPORT INFORMATION
  Report Type: Spontaneous
  Country: IT (occurrence: IT)
  Receive Date: 20250115
  Receipt Date: 20250429
  Transmission Date: 20250716
  Serious: Yes (Hospitalization, Other)
  Sender: MYLAN
  Company Number: None

PATIENT
  Age: 53 Year
  Sex: Female
  Weight: 63 kg

DRUGS (6)
  1. MESALAMINE [Suspect]
     Active Substance: MESALAMINE
     Indication: Gastrointestinal disorder prophylaxis
     Dosage: 800 MILLIGRAM, TID (THREE TIMES A DAY)
     Dates: start: 20241108, end: 20241122
  2. MESALAMINE [Suspect]
     Active Substance: MESALAMINE
     Indication: Gastrointestinal inflammation
  3. MESALAMINE [Suspect]
     Active Substance: MESALAMINE
     Indication: Diverticulitis
  4. MESALAMINE [Suspect]
     Active Substance: MESALAMINE
     Indication: Inflammatory bowel disease
  5. LEVOTHYROXINE SODIUM [Concomitant]
     Active Substance: LEVOTHYROXINE SODIUM
     Indication: Hypothyroidism
  6. RIFAXIMIN [Concomitant]
     Active Substance: RIFAXIMIN

REACTIONS (28)
  - Nail discolouration [Not Recovered/Not Resolved]
  - Nail disorder [Not Recovered/Not Resolved]
  - Haemorrhoids [Not Recovered/Not Resolved]
  - Anal prolapse [Not Recovered/Not Resolved]
  - Rectal haemorrhage [Not Recovered/Not Resolved]
  - Mucosal disorder [Unknown]
  - Eye swelling [Unknown]
  - Yellow nail syndrome [Not Recovered/Not Resolved]
  - Skin wrinkling [Not Recovered/Not Resolved]
  - Skin plaque [Not Recovered/Not Resolved]
  - Noninfective conjunctivitis [Recovering/Resolving]
  - Vulvovaginal inflammation [Recovering/Resolving]
  - Abnormal faeces [Recovering/Resolving]
  - Gastrointestinal inflammation [Recovering/Resolving]
  - Mucous stools [Recovering/Resolving]
  - Skin hypertrophy [Unknown]
  - Pain in extremity [Recovering/Resolving]
  - Irritable bowel syndrome [Recovering/Resolving]
  - Blepharitis [Not Recovered/Not Resolved]
  - Skin fissures [Unknown]
  - Eyelid irritation [Not Recovered/Not Resolved]
  - Hypersensitivity [Unknown]
  - Fatigue [Not Recovered/Not Resolved]
  - Rash [Unknown]
  - Headache [Recovering/Resolving]
  - Nausea [Recovering/Resolving]
  - Psoriasis [Unknown]
  - Off label use [Unknown]

NARRATIVE: CASE EVENT DATE: 20241110
